FAERS Safety Report 18433159 (Version 1)
Quarter: 2020Q4

REPORT INFORMATION
  Report Type: Spontaneous
  Country: US (occurrence: US)
  Receive Date: 20201028
  Receipt Date: 20201028
  Transmission Date: 20210114
  Serious: No
  Sender: FDA-Public Use
  Company Number: US-ACCORD-192509

PATIENT
  Age: 57 Year
  Sex: Female

DRUGS (1)
  1. SPIRONOLACTONE ACCORD [Suspect]
     Active Substance: SPIRONOLACTONE
     Indication: PRODUCT USED FOR UNKNOWN INDICATION
     Dosage: STRENGTH: 25 MG

REACTIONS (7)
  - Back pain [Unknown]
  - Fatigue [Unknown]
  - Abdominal pain [Unknown]
  - Product odour abnormal [Unknown]
  - Chest pain [Unknown]
  - Constipation [Unknown]
  - Heart rate increased [Unknown]
